FAERS Safety Report 21183942 (Version 1)
Quarter: 2022Q3

REPORT INFORMATION
  Report Type: Spontaneous
  Country: US (occurrence: None)
  Receive Date: 20220805
  Receipt Date: 20220805
  Transmission Date: 20221026
  Serious: Yes (Other)
  Sender: FDA-Public Use
  Company Number: None

PATIENT
  Age: 51 Year
  Sex: Female

DRUGS (2)
  1. DIPHENHYDRAMINE [Suspect]
     Active Substance: DIPHENHYDRAMINE
     Indication: Back pain
     Dosage: OTHER QUANTITY : 2 TABLET(S);?FREQUENCY : AS NEEDED;?OTHER ROUTE : INGESTED;?
     Route: 050
  2. IBUPROFEN [Suspect]
     Active Substance: IBUPROFEN

REACTIONS (2)
  - Product substitution issue [None]
  - Muscle tightness [None]

NARRATIVE: CASE EVENT DATE: 20220804
